FAERS Safety Report 8335001-4 (Version None)
Quarter: 2012Q2

REPORT INFORMATION
  Report Type: 
  Country: None (occurrence: None)
  Receive Date: 20120503
  Receipt Date: 20100408
  Transmission Date: 20120825
  Serious: No
  Sender: FDA-Public Use
  Company Number: US-TEVA-2010001769

PATIENT
  Sex: Female

DRUGS (2)
  1. NUVIGIL [Suspect]
     Indication: RESTLESS LEGS SYNDROME
     Route: 048
     Dates: start: 20100325
  2. NUVIGIL [Suspect]
     Indication: FIBROMYALGIA

REACTIONS (6)
  - MANIA [None]
  - LOGORRHOEA [None]
  - DISTURBANCE IN ATTENTION [None]
  - ILLUSION [None]
  - ANXIETY [None]
  - AFFECTIVE DISORDER [None]
